FAERS Safety Report 5056741-9 (Version None)
Quarter: 2006Q2

REPORT INFORMATION
  Report Type: 
  Country: None (occurrence: None)
  Receive Date: 20060619
  Receipt Date: 20051012
  Transmission Date: 20061013
  Serious: Yes (Hospitalization)
  Sender: FDA-Public Use
  Company Number: 2005141579

PATIENT
  Age: 84 Year
  Sex: Female

DRUGS (11)
  1. SOLU-CORTEF [Suspect]
     Indication: TEMPORAL ARTERITIS
     Dosage: INTRAVENOUS
     Route: 042
     Dates: start: 20050801, end: 20050901
  2. PREDNISONE TAB [Suspect]
     Indication: TEMPORAL ARTERITIS
     Dosage: ORAL
     Route: 048
     Dates: start: 20020101
  3. PAXIL [Suspect]
     Indication: DEPRESSION
     Dosage: 40 MG (20 MG,2 IN 1 D),ORAL
     Route: 048
     Dates: start: 20050823
  4. ARANESP [Suspect]
     Indication: ANAEMIA
     Dosage: (60 MCG,1 IN 1 WK),SUBCUTANEOUS
     Route: 058
     Dates: start: 20050801
  5. LOVENOX [Suspect]
     Indication: THROMBOSIS PROPHYLAXIS
     Dosage: 40 MG (40 MG,1 IN 1 D),SUBCUTANEOUS
     Route: 058
     Dates: start: 20050801
  6. INSULIN [Concomitant]
  7. ATENOLOL [Concomitant]
  8. MEGACE [Concomitant]
  9. PREVACID [Concomitant]
  10. DIFLUCAN [Concomitant]
  11. NPH INSULIN [Concomitant]

REACTIONS (3)
  - DYSARTHRIA [None]
  - DYSPHAGIA [None]
  - INTESTINAL PERFORATION [None]
